FAERS Safety Report 5298900-6 (Version None)
Quarter: 2007Q2

REPORT INFORMATION
  Report Type: 
  Country: None (occurrence: None)
  Receive Date: 20070417
  Receipt Date: 20070405
  Transmission Date: 20071010
  Serious: Yes (Hospitalization)
  Sender: FDA-Public Use
  Company Number: US-AMGEN-US216204

PATIENT
  Sex: Male

DRUGS (7)
  1. CINACALCET - BLINDED [Suspect]
     Indication: HYPERPARATHYROIDISM SECONDARY
     Route: 048
     Dates: start: 20070203
  2. NORVASC [Concomitant]
     Route: 048
  3. LIPITOR [Concomitant]
     Route: 048
  4. PLAVIX [Concomitant]
     Route: 048
  5. RENAGEL [Concomitant]
     Route: 048
  6. LISINOPRIL [Concomitant]
     Route: 048
  7. ATENOLOL [Concomitant]
     Route: 048

REACTIONS (3)
  - LOCALISED INFECTION [None]
  - PERIPHERAL VASCULAR DISORDER [None]
  - PYREXIA [None]
